FAERS Safety Report 20231658 (Version 1)
Quarter: 2021Q4

REPORT INFORMATION
  Report Type: Spontaneous
  Country: US (occurrence: US)
  Receive Date: 20211227
  Receipt Date: 20211227
  Transmission Date: 20220303
  Serious: No
  Sender: FDA-Public Use
  Company Number: US-AVEO ONCOLOGY-2021-AVEO-US003625

PATIENT

DRUGS (8)
  1. FOTIVDA [Suspect]
     Active Substance: TIVOZANIB HYDROCHLORIDE
     Indication: Renal cell carcinoma
     Dosage: 1.34 MG, DAILY FOR 21 DAYS, THEN 7 DAYS OFF
     Route: 048
     Dates: start: 20210921
  2. MAGNESIUM OXIDE [Concomitant]
     Active Substance: MAGNESIUM OXIDE
  3. MELATONIN [Concomitant]
     Active Substance: MELATONIN
  4. ONDANSETRON [Concomitant]
     Active Substance: ONDANSETRON
  5. PEPCID [Concomitant]
     Active Substance: FAMOTIDINE
  6. SENNA S [Concomitant]
     Active Substance: DOCUSATE SODIUM\SENNA LEAF
  7. VITAMIN D3 [Concomitant]
     Active Substance: CHOLECALCIFEROL
  8. MENAQUINONE 6 [Concomitant]
     Active Substance: MENAQUINONE 6

REACTIONS (1)
  - Dysphonia [Unknown]
